FAERS Safety Report 5844668-1 (Version None)
Quarter: 2008Q3

REPORT INFORMATION
  Report Type: 
  Country: None (occurrence: None)
  Receive Date: 20080812
  Receipt Date: 20080806
  Transmission Date: 20090109
  Serious: Yes (Hospitalization)
  Sender: FDA-Public Use
  Company Number: 2008SP014874

PATIENT
  Age: 60 Year
  Sex: Male
  Weight: 59.4 kg

DRUGS (5)
  1. PEG-INTRON [Suspect]
     Indication: HEPATITIS C
     Dosage: 80 MCG; QW; SC
     Route: 058
     Dates: start: 20070315, end: 20071209
  2. RIBAVIRIN [Suspect]
     Indication: HEPATITIS C
     Dosage: 1000 MG; QD; PO
     Route: 048
     Dates: start: 20070315, end: 20071209
  3. MOTILIUM /00384302/ [Concomitant]
  4. PK-MERZ /00055902/ [Concomitant]
  5. RISPERDAL [Concomitant]

REACTIONS (5)
  - COMMUNITY ACQUIRED INFECTION [None]
  - HAEMOPHILUS INFECTION [None]
  - PANCYTOPENIA [None]
  - PNEUMONIA [None]
  - PSYCHOTIC DISORDER [None]
